FAERS Safety Report 14143895 (Version 1)
Quarter: 2017Q4

REPORT INFORMATION
  Report Type: Report from Study
  Country: None (occurrence: BR)
  Receive Date: 20171031
  Receipt Date: 20171031
  Transmission Date: 20180321
  Serious: Yes (Other)
  Sender: FDA-Public Use
  Company Number: BR-ABBVIE-16K-020-1581318-00

PATIENT
  Age: 54 Year
  Sex: Female
  Weight: 73 kg

DRUGS (1)
  1. HUMIRA [Suspect]
     Active Substance: ADALIMUMAB
     Indication: PSORIATIC ARTHROPATHY
     Route: 058
     Dates: start: 20130212

REACTIONS (12)
  - Vomiting [Unknown]
  - Influenza [Recovered/Resolved]
  - Influenza [Recovered/Resolved]
  - Pharyngeal inflammation [Recovered/Resolved]
  - Hernia pain [Unknown]
  - Pharyngeal inflammation [Recovering/Resolving]
  - Abdominal hernia [Recovering/Resolving]
  - Pleural effusion [Recovering/Resolving]
  - Stoma site pain [Recovering/Resolving]
  - Lung infection [Recovering/Resolving]
  - Hernia perforation [Not Recovered/Not Resolved]
  - Intra-abdominal pressure increased [Unknown]

NARRATIVE: CASE EVENT DATE: 2015
